FAERS Safety Report 7526743-9 (Version None)
Quarter: 2011Q2

REPORT INFORMATION
  Report Type: 
  Country: None (occurrence: None)
  Receive Date: 20110606
  Receipt Date: 20110527
  Transmission Date: 20111010
  Serious: Yes (Other)
  Sender: FDA-Public Use
  Company Number: BR-SANOFI-AVENTIS-2011SA033790

PATIENT
  Age: 60 Year
  Sex: Male
  Weight: 104 kg

DRUGS (9)
  1. SOMALGIN [Concomitant]
     Route: 048
     Dates: start: 20030101
  2. LANTUS [Suspect]
     Route: 058
  3. METFORMIN HCL [Concomitant]
     Indication: TYPE 2 DIABETES MELLITUS
     Route: 048
  4. AMLODIPINE [Concomitant]
     Route: 048
  5. ATENOLOL [Concomitant]
     Route: 048
  6. OPTIPEN [Suspect]
     Dates: start: 20030101
  7. INSULIN [Concomitant]
     Indication: TYPE 2 DIABETES MELLITUS
     Route: 058
     Dates: start: 20050101
  8. LANTUS [Suspect]
     Indication: TYPE 2 DIABETES MELLITUS
     Route: 058
     Dates: start: 20030101
  9. SIMVASTATIN [Concomitant]
     Route: 048
     Dates: start: 20030101

REACTIONS (2)
  - INJECTION SITE PAIN [None]
  - ARTERIAL OCCLUSIVE DISEASE [None]
